FAERS Safety Report 6772373-6 (Version None)
Quarter: 2010Q2

REPORT INFORMATION
  Report Type: 
  Country: None (occurrence: None)
  Receive Date: 20100616
  Receipt Date: 20091116
  Transmission Date: 20101027
  Serious: No
  Sender: FDA-Public Use
  Company Number: US-ASTRAZENECA-2009SE26685

PATIENT
  Age: 65 Year
  Sex: Female
  Weight: 72.6 kg

DRUGS (3)
  1. PULMICORT RESPULES [Suspect]
     Route: 045
     Dates: start: 20091112, end: 20091112
  2. PRILOSEC OTC [Concomitant]
  3. THYROID MEDICATION [Concomitant]

REACTIONS (2)
  - BURNING SENSATION MUCOSAL [None]
  - INCORRECT ROUTE OF DRUG ADMINISTRATION [None]
